FAERS Safety Report 4369154-X (Version None)
Quarter: 2004Q2

REPORT INFORMATION
  Report Type: 
  Country: None (occurrence: None)
  Receive Date: 20040528
  Receipt Date: 20030807
  Transmission Date: 20050107
  Serious: Yes (Other)
  Sender: FDA-Public Use
  Company Number: BE-JNJFOC-20030801935

PATIENT
  Age: 66 Year
  Sex: Female

DRUGS (10)
  1. CISAPRIDE (CISAPRIDE) TABLETS [Suspect]
     Indication: DIABETIC GASTROPARESIS
     Dosage: 10 MG, 2 IN 1 DAY, ORAL
     Route: 048
     Dates: start: 19970101, end: 20030806
  2. TRAMADOL HCL [Concomitant]
  3. CORUNO (MOLSIDOMINE) [Concomitant]
  4. ZANTAC [Concomitant]
  5. ACETAMINOPHEN [Concomitant]
  6. CARDIO-ASPIRINE (CARDIAC THERAPY) [Concomitant]
  7. DETRUSTOL (TOLTERODINE L-TARTRATE) [Concomitant]
  8. NITRODERM [Concomitant]
  9. INSULIN MIXTARD (INSULIN INJECTION, ISOPHANE) [Concomitant]
  10. MOVICOL (NULYTELY) [Concomitant]

REACTIONS (1)
  - ELECTROCARDIOGRAM QT CORRECTED INTERVAL PROLONGED [None]
